FAERS Safety Report 18361998 (Version 1)
Quarter: 2020Q4

REPORT INFORMATION
  Report Type: Spontaneous
  Country: PL (occurrence: PL)
  Receive Date: 20201008
  Receipt Date: 20201008
  Transmission Date: 20210114
  Serious: Yes (Other)
  Sender: FDA-Public Use
  Company Number: PL-MYLANLABS-2020M1084725

PATIENT
  Age: 69 Year
  Sex: Female

DRUGS (2)
  1. ISOPTINE 40 MG, COMPRIM? ENROB? [Suspect]
     Active Substance: VERAPAMIL HYDROCHLORIDE
     Indication: HYPERTENSION
     Dosage: UNK UNK, BID (1 TABLET 2 TIMES A DAY (UP TO 16:00))
     Route: 048
     Dates: start: 202002
  2. RENNIE                             /01739201/ [Concomitant]
     Active Substance: CALCIUM CARBONATE\MAGNESIUM CARBONATE
     Dosage: UNK

REACTIONS (3)
  - Laryngeal oedema [Unknown]
  - Pharyngeal oedema [Unknown]
  - Dysphagia [Unknown]
